FAERS Safety Report 19168080 (Version 4)
Quarter: 2021Q4

REPORT INFORMATION
  Report Type: Report from Study
  Country: US (occurrence: US)
  Receive Date: 20210422
  Receipt Date: 20211229
  Transmission Date: 20220304
  Serious: Yes (Other)
  Sender: FDA-Public Use
  Company Number: NVSC2021US083174

PATIENT
  Sex: Female

DRUGS (1)
  1. ENTRESTO [Suspect]
     Active Substance: SACUBITRIL\VALSARTAN
     Indication: Product used for unknown indication
     Dosage: UNK
     Route: 065

REACTIONS (8)
  - Cardiac failure [Unknown]
  - Hypersomnia [Unknown]
  - Pain [Unknown]
  - Peripheral swelling [Unknown]
  - Swelling face [Unknown]
  - Fatigue [Unknown]
  - Asthenia [Unknown]
  - Product prescribing issue [Unknown]
